FAERS Safety Report 9378089 (Version 1)
Quarter: 2013Q2

REPORT INFORMATION
  Report Type: Spontaneous
  Country: IN (occurrence: None)
  Receive Date: 20130625
  Receipt Date: 20130625
  Transmission Date: 20140414
  Serious: Yes (Other)
  Sender: FDA-Public Use
  Company Number: 2013P1008592

PATIENT
  Age: 53 Year
  Sex: Male

DRUGS (4)
  1. ESCITALOPRAM [Suspect]
  2. PREGABALIN [Suspect]
  3. AMITRYPTILINE [Suspect]
  4. CARBAMAZIPINE [Suspect]

REACTIONS (16)
  - Gait disturbance [None]
  - Lethargy [None]
  - Memory impairment [None]
  - Neurological decompensation [None]
  - Lack of spontaneous speech [None]
  - Apathy [None]
  - Urinary incontinence [None]
  - Mini mental status examination abnormal [None]
  - Gait disturbance [None]
  - Peripheral sensorimotor neuropathy [None]
  - Diabetic retinopathy [None]
  - Normal pressure hydrocephalus [None]
  - Cerebral ventricle dilatation [None]
  - Central nervous system infection [None]
  - Cognitive disorder [None]
  - Dementia [None]
